FAERS Safety Report 13143703 (Version 3)
Quarter: 2017Q1

REPORT INFORMATION
  Report Type: Spontaneous
  Country: US (occurrence: US)
  Receive Date: 20170124
  Receipt Date: 20170310
  Transmission Date: 20170428
  Serious: Yes (Other)
  Sender: FDA-Public Use
  Company Number: US-BAYER-2017-011906

PATIENT
  Age: 13 Year
  Weight: 42.8 kg

DRUGS (2)
  1. GADAVIST [Suspect]
     Active Substance: GADOBUTROL
     Dosage: UNK UNK, ONCE
     Dates: start: 20170114, end: 20170114
  2. GADAVIST [Suspect]
     Active Substance: GADOBUTROL
     Dosage: 4.3 ML, ONCE
     Dates: start: 20160729

REACTIONS (7)
  - Vomiting [None]
  - Erythema [None]
  - Nausea [None]
  - Cough [None]
  - Respiratory distress [None]
  - Pruritus [None]
  - Sneezing [None]

NARRATIVE: CASE EVENT DATE: 20170114
